FAERS Safety Report 7600486-5 (Version None)
Quarter: 2011Q3

REPORT INFORMATION
  Report Type: 
  Country: None (occurrence: None)
  Receive Date: 20110706
  Receipt Date: 20110706
  Transmission Date: 20111222
  Serious: Yes (Other)
  Sender: FDA-Public Use
  Company Number: None

PATIENT
  Age: 44 Year
  Sex: Female
  Weight: 71.2147 kg

DRUGS (2)
  1. CYMBALTA [Suspect]
     Indication: DEPRESSION
     Dosage: 30 MG ONCE DAILY MOUTH
     Route: 048
     Dates: start: 20101231, end: 20110614
  2. CYMBALTA [Suspect]
     Indication: HYPOAESTHESIA
     Dosage: 30 MG ONCE DAILY MOUTH
     Route: 048
     Dates: start: 20101231, end: 20110614

REACTIONS (4)
  - WEIGHT INCREASED [None]
  - TARSAL TUNNEL SYNDROME [None]
  - DIABETES MELLITUS INADEQUATE CONTROL [None]
  - OEDEMA PERIPHERAL [None]
